FAERS Safety Report 5374124-9 (Version None)
Quarter: 2007Q2

REPORT INFORMATION
  Report Type: 
  Country: None (occurrence: None)
  Receive Date: 20070627
  Receipt Date: 20070613
  Transmission Date: 20071010
  Serious: Yes (Other)
  Sender: FDA-Public Use
  Company Number: M7001-00009-SPO-FR

PATIENT
  Age: 83 Year
  Sex: Male

DRUGS (1)
  1. TARGRETIN CAPSULES (BEXAROTENE) [Suspect]
     Indication: LYMPHOMA
     Dosage: ORAL
     Route: 048
     Dates: start: 20070101

REACTIONS (1)
  - DEAFNESS UNILATERAL [None]
